FAERS Safety Report 15802649 (Version 1)
Quarter: 2019Q1

REPORT INFORMATION
  Report Type: Spontaneous
  Country: US (occurrence: US)
  Receive Date: 20190104
  Receipt Date: 20190104
  Transmission Date: 20190417
  Serious: No
  Sender: FDA-Public Use
  Company Number: None

PATIENT

DRUGS (2)
  1. BACLOFEN. [Suspect]
     Active Substance: BACLOFEN
  2. VIAGRA [Suspect]
     Active Substance: SILDENAFIL CITRATE

REACTIONS (6)
  - Dizziness [None]
  - Asthenia [None]
  - Anxiety [None]
  - Wrong product administered [None]
  - Nausea [None]
  - Product dispensing error [None]

NARRATIVE: CASE EVENT DATE: 2018
